FAERS Safety Report 8143639-2 (Version None)
Quarter: 2012Q1

REPORT INFORMATION
  Report Type: 
  Country: None (occurrence: None)
  Receive Date: 20120103
  Receipt Date: 20110930
  Transmission Date: 20120608
  Serious: No
  Sender: FDA-Public Use
  Company Number: AE-2011-001686

PATIENT
  Age: 55 Year
  Sex: Male
  Weight: 107.9561 kg

DRUGS (3)
  1. INCIVEK [Suspect]
     Dosage: 2250 MG (750 MG, 1 IN 8 HR)
     Dates: start: 20110901
  2. RIBAVIRIN [Concomitant]
  3. PEGASYS [Concomitant]

REACTIONS (7)
  - CHILLS [None]
  - NAUSEA [None]
  - INFLUENZA LIKE ILLNESS [None]
  - FATIGUE [None]
  - PYREXIA [None]
  - DIZZINESS [None]
  - RASH [None]
